FAERS Safety Report 11170594 (Version 1)
Quarter: 2015Q2

REPORT INFORMATION
  Report Type: Spontaneous
  Country: JP (occurrence: JP)
  Receive Date: 20150608
  Receipt Date: 20150608
  Transmission Date: 20150821
  Serious: Yes (Other)
  Sender: FDA-Public Use
  Company Number: JP-TEVA-568403ISR

PATIENT
  Age: 29 Year
  Sex: Female

DRUGS (2)
  1. GEMCITABINE [Suspect]
     Active Substance: GEMCITABINE\GEMCITABINE HYDROCHLORIDE
     Indication: OVARIAN CANCER METASTATIC
     Dosage: 1000MG/M2 ON D1 AND 8 EVERY 28D; SIX CYCLES
     Route: 042
  2. CISPLATIN. [Suspect]
     Active Substance: CISPLATIN
     Indication: OVARIAN CANCER METASTATIC
     Dosage: 70MG/M2 ON D1 EVERY 28D; SIX CYCLES
     Route: 042

REACTIONS (3)
  - Nausea [Unknown]
  - Neutropenia [Unknown]
  - Infertility female [Not Recovered/Not Resolved]
